FAERS Safety Report 5723578-4 (Version None)
Quarter: 2008Q2

REPORT INFORMATION
  Report Type: 
  Country: None (occurrence: None)
  Receive Date: 20080430
  Receipt Date: 20080428
  Transmission Date: 20081010
  Serious: Yes (Other)
  Sender: FDA-Public Use
  Company Number: B0518449A

PATIENT
  Age: 38 Year
  Sex: Male

DRUGS (1)
  1. ARRANON [Suspect]
     Route: 065
     Dates: start: 20080423, end: 20080423

REACTIONS (2)
  - PYREXIA [None]
  - VERTIGO [None]
